FAERS Safety Report 21869794 (Version 3)
Quarter: 2024Q2

REPORT INFORMATION
  Report Type: Report from Study
  Country: US (occurrence: US)
  Receive Date: 20230117
  Receipt Date: 20240621
  Transmission Date: 20240716
  Serious: Yes (Death, Hospitalization)
  Sender: FDA-Public Use
  Company Number: US-BAUSCH-BL-2023-000658

PATIENT
  Age: 70 Year
  Sex: Female

DRUGS (1)
  1. XIFAXAN [Suspect]
     Active Substance: RIFAXIMIN
     Indication: Hepatic cirrhosis
     Route: 048

REACTIONS (7)
  - Death [Fatal]
  - Sepsis [Unknown]
  - Rotator cuff syndrome [Unknown]
  - Back pain [Unknown]
  - Neck pain [Unknown]
  - Urinary tract infection [Unknown]
  - Arthralgia [Unknown]
